FAERS Safety Report 4557186-8 (Version None)
Quarter: 2005Q1

REPORT INFORMATION
  Report Type: 
  Country: None (occurrence: None)
  Receive Date: 20050114
  Receipt Date: 20040104
  Transmission Date: 20050727
  Serious: Yes (Hospitalization)
  Sender: FDA-Public Use
  Company Number: MK200411-0202-1

PATIENT
  Age: 47 Year
  Sex: Female

DRUGS (2)
  1. TOFRANIL TAB [Suspect]
     Dates: start: 20041014, end: 20041109
  2. TEGRETOL [Suspect]
     Indication: DEPRESSION

REACTIONS (4)
  - AGRANULOCYTOSIS [None]
  - BIOPSY BONE MARROW ABNORMAL [None]
  - HAEMOGLOBIN DECREASED [None]
  - PLATELET COUNT INCREASED [None]
